FAERS Safety Report 7914280-9 (Version None)
Quarter: 2011Q4

REPORT INFORMATION
  Report Type: 
  Country: None (occurrence: None)
  Receive Date: 20111110
  Receipt Date: 20111101
  Transmission Date: 20120403
  Serious: Yes (Other)
  Sender: FDA-Public Use
  Company Number: OMPQ-NO-1111S-1693

PATIENT
  Age: 88 Year
  Sex: Female

DRUGS (1)
  1. OMNIPAQUE 70 [Suspect]
     Indication: PRODUCT USED FOR UNKNOWN INDICATION
     Dosage: INTRAVENOUS
     Route: 042
     Dates: start: 20110819, end: 20110819

REACTIONS (1)
  - INFUSION SITE EXTRAVASATION [None]
